FAERS Safety Report 25637062 (Version 3)
Quarter: 2025Q4

REPORT INFORMATION
  Report Type: Spontaneous
  Country: JP (occurrence: JP)
  Receive Date: 20250804
  Receipt Date: 20251010
  Transmission Date: 20260117
  Serious: Yes (Hospitalization)
  Sender: NOVO NORDISK
  Company Number: JP-NOVOPROD-1467555

PATIENT
  Age: 47 Year
  Sex: Female

DRUGS (10)
  1. FIASP [Suspect]
     Active Substance: INSULIN ASPART
     Indication: Gestational diabetes
     Dosage: 27 IU, TID
     Route: 058
     Dates: start: 20240314, end: 20240625
  2. VIMPAT [Concomitant]
     Active Substance: LACOSAMIDE
     Indication: Epilepsy
     Dosage: 300 MG, QD (AFTER EACH MEALS)
     Route: 048
     Dates: start: 2014
  3. CERCINE [Concomitant]
     Active Substance: DIAZEPAM
     Indication: Epilepsy
     Dosage: 3 MG/DAY (2 MG IN THE EVENING, 6 MG BEFORE BEDTIME)
     Dates: start: 2014
  4. MIYA-BM [Concomitant]
     Active Substance: CLOSTRIDIUM BUTYRICUM SPORES STRAIN M-55
     Indication: Constipation
     Dosage: 3 TABLETS/DAY, TID AFTER EACH MEALS
     Route: 048
     Dates: start: 20240127
  5. FOLIC ACID [Concomitant]
     Active Substance: FOLIC ACID
     Indication: Anaemia folate deficiency
     Dosage: 5 MG, QD, AFTER BREAKFAST
     Route: 048
     Dates: start: 20240205, end: 20240625
  6. VITAMEDIN [CYANOCOBALAMIN;PYRIDOXINE HYDROCHLORIDE;THIAMINE HYDROCHLOR [Concomitant]
     Indication: Vitamin B complex deficiency
     Dosage: 3 CAPSULES/DAY, TID AFTER EACH MEALS
     Route: 048
  7. MAGNESIUM OXIDE [Concomitant]
     Active Substance: MAGNESIUM OXIDE
     Indication: Constipation
     Dosage: UNK3 TABLETS/DAY, TID AFTER EACH MEALS
     Route: 048
     Dates: start: 20240301, end: 20240625
  8. ISOXSUPRINE HYDROCHLORIDE [Concomitant]
     Active Substance: ISOXSUPRINE HYDROCHLORIDE
     Indication: Premature labour
  9. ISOXSUPRINE HYDROCHLORIDE [Concomitant]
     Active Substance: ISOXSUPRINE HYDROCHLORIDE
     Indication: Abortion threatened
     Dosage: 80 MG, QID
     Route: 048
     Dates: start: 20240309, end: 20240625
  10. FERRIC CITRATE ANHYDROUS [Concomitant]
     Active Substance: FERRIC CITRATE ANHYDROUS
     Indication: Product used for unknown indication
     Dosage: 2 TABS AFTER BREAKFAST
     Route: 048
     Dates: start: 20240408, end: 20240412

REACTIONS (7)
  - Postprandial hypoglycaemia [Recovered/Resolved]
  - Premature delivery [Unknown]
  - Premature rupture of membranes [Unknown]
  - Fungal infection [Unknown]
  - Upper respiratory tract infection [Unknown]
  - Hyperglycaemia [Unknown]
  - Maternal exposure during pregnancy [Recovered/Resolved]

NARRATIVE: CASE EVENT DATE: 20240622
